FAERS Safety Report 9051973 (Version 1)
Quarter: 2013Q1

REPORT INFORMATION
  Report Type: Spontaneous
  Country: US (occurrence: None)
  Receive Date: 20130130
  Receipt Date: 20130130
  Transmission Date: 20140127
  Serious: Yes (Other)
  Sender: FDA-Public Use
  Company Number: None

PATIENT
  Age: 16 Year
  Sex: Male
  Weight: 126.55 kg

DRUGS (1)
  1. ESCITALOPRAM 20 MG MYLAN [Suspect]
     Indication: DEPRESSION
     Route: 048
     Dates: start: 20120318

REACTIONS (1)
  - Suicidal ideation [None]
